FAERS Safety Report 4620053-5 (Version None)
Quarter: 2005Q1

REPORT INFORMATION
  Report Type: 
  Country: None (occurrence: None)
  Receive Date: 20050324
  Receipt Date: 20050316
  Transmission Date: 20050727
  Serious: Yes (Hospitalization)
  Sender: FDA-Public Use
  Company Number: ZA-2005-003892

PATIENT
  Sex: Female

DRUGS (1)
  1. MIRENA [Suspect]
     Indication: CONTRACEPTION
     Dosage: 20 UG/DAY, CONT, INTRA-UTERINE
     Route: 015
     Dates: start: 20010601, end: 20041229

REACTIONS (4)
  - AMENORRHOEA [None]
  - PERITONEAL HAEMORRHAGE [None]
  - PREGNANCY WITH CONTRACEPTIVE DEVICE [None]
  - VAGINAL HAEMORRHAGE [None]
